FAERS Safety Report 4293229-7 (Version None)
Quarter: 2004Q1

REPORT INFORMATION
  Report Type: 
  Country: None (occurrence: None)
  Receive Date: 20040126
  Receipt Date: 20031106
  Transmission Date: 20041129
  Serious: No
  Sender: FDA-Public Use
  Company Number: USA031151945

PATIENT
  Age: 82 Year
  Sex: Female

DRUGS (3)
  1. FORTEO [Suspect]
     Indication: OSTEOPOROSIS
  2. HYDROCHLOROTHIAZIDE [Concomitant]
  3. CITRACAL (CALCIUM CITRATE) [Concomitant]

REACTIONS (1)
  - INJECTION SITE ERYTHEMA [None]
